FAERS Safety Report 19198543 (Version 3)
Quarter: 2021Q2

REPORT INFORMATION
  Report Type: Spontaneous
  Country: US (occurrence: US)
  Receive Date: 20210430
  Receipt Date: 20210506
  Transmission Date: 20210717
  Serious: Yes (Other)
  Sender: FDA-Public Use
  Company Number: US-TEVA-2021-US-1905330

PATIENT
  Sex: Male

DRUGS (2)
  1. EPINEPHRINE. [Suspect]
     Active Substance: EPINEPHRINE
     Indication: PHARYNGEAL SWELLING
  2. EPINEPHRINE. [Suspect]
     Active Substance: EPINEPHRINE
     Indication: SWOLLEN TONGUE
     Route: 065
     Dates: start: 20210402

REACTIONS (4)
  - Swollen tongue [Unknown]
  - Pharyngeal swelling [Unknown]
  - Drug ineffective [Unknown]
  - Dizziness [Unknown]

NARRATIVE: CASE EVENT DATE: 20210402
